FAERS Safety Report 12502316 (Version 6)
Quarter: 2018Q4

REPORT INFORMATION
  Report Type: Spontaneous
  Country: FR (occurrence: FR)
  Receive Date: 20160627
  Receipt Date: 20181225
  Transmission Date: 20190204
  Serious: Yes (Congenital Anomaly, Other)
  Sender: FDA-Public Use
  Company Number: FR-ABBVIE-16P-056-1662474-00

PATIENT
  Sex: Male

DRUGS (1)
  1. DEPAKINE CHRONO [Suspect]
     Active Substance: VALPROATE SODIUM
     Indication: MATERNAL EXPOSURE TIMING UNSPECIFIED
     Route: 064

REACTIONS (27)
  - Joint laxity [Unknown]
  - Dyspraxia [Unknown]
  - Psychomotor retardation [Unknown]
  - Vomiting [Unknown]
  - Asthma [Unknown]
  - Hypotonia [Unknown]
  - Lividity [Unknown]
  - Dysphagia [Unknown]
  - Psychomotor skills impaired [Unknown]
  - Urinary tract disorder [Unknown]
  - Foetal exposure during pregnancy [Unknown]
  - Nightmare [Unknown]
  - Kyphosis [Unknown]
  - Disturbance in attention [Unknown]
  - Cerebellar atrophy [Not Recovered/Not Resolved]
  - Syndactyly [Unknown]
  - Spinocerebellar ataxia [Unknown]
  - Dysmorphism [Unknown]
  - Pectus excavatum [Unknown]
  - Visual impairment [Unknown]
  - Spina bifida [Unknown]
  - Memory impairment [Unknown]
  - Dental restoration failure [Unknown]
  - Epistaxis [Unknown]
  - Autism spectrum disorder [Not Recovered/Not Resolved]
  - Epidural lipomatosis [Not Recovered/Not Resolved]
  - Speech disorder developmental [Unknown]

NARRATIVE: CASE EVENT DATE: 200610
